FAERS Safety Report 10368248 (Version 1)
Quarter: 2014Q3

REPORT INFORMATION
  Report Type: Spontaneous
  Country: US (occurrence: None)
  Receive Date: 20140805
  Receipt Date: 20140805
  Transmission Date: 20150326
  Serious: Yes (Other)
  Sender: FDA-Public Use
  Company Number: FK201403083

PATIENT
  Age: 61 Year
  Sex: Female

DRUGS (1)
  1. LETROZOLE (MANUFACTURER UNKNOWN) (LETROZOLE) (LETROZOLE) [Suspect]
     Active Substance: LETROZOLE
     Indication: BREAST CANCER

REACTIONS (5)
  - Arthralgia [None]
  - Musculoskeletal stiffness [None]
  - Systemic sclerosis [None]
  - Activities of daily living impaired [None]
  - Antinuclear antibody [None]
